FAERS Safety Report 6707944-6 (Version None)
Quarter: 2010Q2

REPORT INFORMATION
  Report Type: 
  Country: None (occurrence: None)
  Receive Date: 20100503
  Receipt Date: 20100419
  Transmission Date: 20101027
  Serious: Yes (Disabling)
  Sender: FDA-Public Use
  Company Number: CA-CELGENEUS-028-21880-10030969

PATIENT
  Sex: Male

DRUGS (2)
  1. REVLIMID [Suspect]
     Indication: MULTIPLE MYELOMA
     Route: 048
     Dates: start: 20100217
  2. DEXAMETHASONE [Suspect]
     Indication: MULTIPLE MYELOMA
     Dosage: 20
     Route: 065
     Dates: start: 20100201

REACTIONS (6)
  - APTYALISM [None]
  - DECREASED APPETITE [None]
  - FATIGUE [None]
  - MOOD ALTERED [None]
  - MUSCLE SPASMS [None]
  - WEIGHT DECREASED [None]
